FAERS Safety Report 7337847-8 (Version None)
Quarter: 2011Q1

REPORT INFORMATION
  Report Type: 
  Country: None (occurrence: None)
  Receive Date: 20110303
  Receipt Date: 20110303
  Transmission Date: 20110831
  Serious: Yes (Hospitalization, Disabling)
  Sender: FDA-Public Use
  Company Number: None

PATIENT
  Age: 80 Year
  Sex: Female
  Weight: 59.4212 kg

DRUGS (1)
  1. DARVOCET [Suspect]
     Indication: PAIN IN EXTREMITY
     Dosage: 1 CAPSULE EVERY 6 HRS PO
     Route: 048
     Dates: start: 20020901, end: 20101001

REACTIONS (3)
  - CARDIAC DISORDER [None]
  - DIZZINESS [None]
  - LOSS OF CONSCIOUSNESS [None]
